FAERS Safety Report 11941829 (Version 3)
Quarter: 2016Q1

REPORT INFORMATION
  Report Type: Report from Study
  Country: CA (occurrence: CA)
  Receive Date: 20160124
  Receipt Date: 20160304
  Transmission Date: 20160526
  Serious: Yes (Hospitalization, Other)
  Sender: FDA-Public Use
  Company Number: CA-REGENERON PHARMACEUTICALS, INC.-2016-10646

PATIENT

DRUGS (1)
  1. EYLEA [Suspect]
     Active Substance: AFLIBERCEPT
     Indication: NEOVASCULAR AGE-RELATED MACULAR DEGENERATION
     Dosage: UNK, OS LEFT EYE
     Route: 031
     Dates: start: 20151002

REACTIONS (5)
  - Metastases to liver [Not Recovered/Not Resolved]
  - Pneumonia [Unknown]
  - Neovascular age-related macular degeneration [Unknown]
  - Metastases to lymph nodes [Not Recovered/Not Resolved]
  - Renal cell carcinoma stage IV [Not Recovered/Not Resolved]

NARRATIVE: CASE EVENT DATE: 201601
